FAERS Safety Report 4979900-X (Version None)
Quarter: 2006Q2

REPORT INFORMATION
  Report Type: 
  Country: None (occurrence: None)
  Receive Date: 20060421
  Receipt Date: 20060130
  Transmission Date: 20061013
  Serious: Yes (Hospitalization)
  Sender: FDA-Public Use
  Company Number: US-MERCK-0601USA03643

PATIENT
  Age: 32 Year
  Sex: Male
  Weight: 77 kg

DRUGS (6)
  1. VITAMINS (UNSPECIFIED) [Concomitant]
     Route: 048
  2. VIOXX [Suspect]
     Indication: JOINT INJURY
     Route: 048
     Dates: start: 20020101, end: 20020601
  3. ADVIL [Concomitant]
     Route: 065
  4. TETRACYCLINE [Concomitant]
     Indication: ACNE
     Route: 048
  5. AMBIEN [Concomitant]
     Route: 048
  6. ASPIRIN [Concomitant]
     Route: 048

REACTIONS (6)
  - ARTHROPATHY [None]
  - BRONCHITIS [None]
  - CARDIAC DISORDER [None]
  - CERUMEN IMPACTION [None]
  - INSOMNIA [None]
  - SINUSITIS [None]
